FAERS Safety Report 7814137-8 (Version None)
Quarter: 2011Q4

REPORT INFORMATION
  Report Type: 
  Country: None (occurrence: None)
  Receive Date: 20111014
  Receipt Date: 20110930
  Transmission Date: 20120403
  Serious: Yes (Other)
  Sender: FDA-Public Use
  Company Number: US-BAYER-2010-009131

PATIENT
  Age: 37 Year
  Sex: Female
  Weight: 62.585 kg

DRUGS (3)
  1. DROSPIRENONE AND ETHINYL ESTRADIOL [Suspect]
     Indication: CONTRACEPTION
     Dosage: UNK
     Dates: start: 20080701, end: 20081201
  2. YASMIN [Suspect]
     Indication: CONTRACEPTION
     Dosage: UNK
     Dates: start: 20040301, end: 20050901
  3. YASMIN [Suspect]
     Dosage: UNK
     Dates: start: 20060701, end: 20080701

REACTIONS (8)
  - PAIN [None]
  - EMOTIONAL DISTRESS [None]
  - HYPOAESTHESIA [None]
  - HEADACHE [None]
  - DIZZINESS [None]
  - CEREBRAL ARTERY OCCLUSION [None]
  - VOMITING [None]
  - CEREBRAL INFARCTION [None]
